FAERS Safety Report 11087418 (Version 2)
Quarter: 2015Q2

REPORT INFORMATION
  Report Type: Spontaneous
  Country: US (occurrence: US)
  Receive Date: 20150504
  Receipt Date: 20150513
  Transmission Date: 20150821
  Serious: Yes (Death, Hospitalization)
  Sender: FDA-Public Use
  Company Number: US-MERCK-1504USA024196

PATIENT
  Age: 50 Year
  Sex: Male

DRUGS (1)
  1. KEYTRUDA [Suspect]
     Active Substance: PEMBROLIZUMAB
     Indication: METASTATIC MALIGNANT MELANOMA
     Dosage: UNK
     Dates: start: 201501, end: 20150409

REACTIONS (4)
  - Swelling [Unknown]
  - Death [Fatal]
  - Platelet count decreased [Unknown]
  - Urinary retention [Unknown]

NARRATIVE: CASE EVENT DATE: 20150425
